FAERS Safety Report 5402396-0 (Version None)
Quarter: 2007Q3

REPORT INFORMATION
  Report Type: 
  Country: None (occurrence: None)
  Receive Date: 20070730
  Receipt Date: 20070717
  Transmission Date: 20080115
  Serious: Yes (Other)
  Sender: FDA-Public Use
  Company Number: 2007VX001881

PATIENT
  Sex: Female

DRUGS (1)
  1. EFUDEX [Suspect]
     Dosage: BID;TOP
     Route: 061
     Dates: start: 20061001, end: 20061001

REACTIONS (3)
  - APPLICATION SITE PRURITUS [None]
  - BLOOD CREATINE PHOSPHOKINASE INCREASED [None]
  - RASH MACULAR [None]
